FAERS Safety Report 8595915-7 (Version None)
Quarter: 2012Q3

REPORT INFORMATION
  Report Type: 
  Country: None (occurrence: None)
  Receive Date: 20120815
  Receipt Date: 20120808
  Transmission Date: 20120928
  Serious: Yes (Other)
  Sender: FDA-Public Use
  Company Number: US-FRI-1000037710

PATIENT
  Age: 78 Year
  Sex: Male

DRUGS (9)
  1. VIIBRYD [Suspect]
     Indication: DEPRESSION
     Dosage: 10 MG
     Route: 048
     Dates: start: 20111201
  2. RANITIDINE [Concomitant]
  3. WARFARIN SODIUM [Concomitant]
     Indication: ATRIAL FIBRILLATION
  4. CARDIZEM [Concomitant]
     Indication: ATRIAL FIBRILLATION
  5. FLOMAX [Concomitant]
  6. LIPITOR [Concomitant]
     Dates: start: 19960101, end: 20120701
  7. VIIBRYD [Suspect]
     Dosage: 20 MG
     Route: 048
     Dates: end: 20120201
  8. VIIBRYD [Suspect]
     Dosage: 40 MG
     Route: 048
     Dates: start: 20120201
  9. WARFARIN SODIUM [Concomitant]
     Indication: DEEP VEIN THROMBOSIS

REACTIONS (2)
  - BLOOD CREATININE INCREASED [None]
  - GLOMERULAR FILTRATION RATE DECREASED [None]
